FAERS Safety Report 18746198 (Version 1)
Quarter: 2021Q1

REPORT INFORMATION
  Report Type: Spontaneous
  Country: FR (occurrence: FR)
  Receive Date: 20210115
  Receipt Date: 20210115
  Transmission Date: 20210419
  Serious: Yes (Hospitalization)
  Sender: FDA-Public Use
  Company Number: FR-TEVA-2021-FR-1868472

PATIENT
  Age: 67 Year
  Sex: Female
  Weight: 107 kg

DRUGS (4)
  1. LOXEN L P 50 MG, GELULE A LIBERATION PROLONGEE [Suspect]
     Active Substance: NICARDIPINE HYDROCHLORIDE
     Indication: TOXICITY TO VARIOUS AGENTS
     Dosage: 20 DOSAGE FORMS
     Route: 048
     Dates: start: 20201215, end: 20201215
  2. LORMETAZEPAM [Suspect]
     Active Substance: LORMETAZEPAM
     Indication: TOXICITY TO VARIOUS AGENTS
     Dosage: 28 DOSAGE FORMS
     Route: 048
     Dates: start: 20201215, end: 20201215
  3. ZOPICLONE [Suspect]
     Active Substance: ZOPICLONE
     Indication: TOXICITY TO VARIOUS AGENTS
     Dosage: 28 DOSAGE FORMS
     Route: 048
     Dates: start: 20201215, end: 20201215
  4. ALLOPURINOL. [Suspect]
     Active Substance: ALLOPURINOL
     Indication: TOXICITY TO VARIOUS AGENTS
     Dosage: 9 DOSAGE FORMS
     Route: 048
     Dates: start: 20201215, end: 20201215

REACTIONS (3)
  - Coma [Recovered/Resolved]
  - Hypopnoea [Recovered/Resolved]
  - Hypotension [Recovered/Resolved]

NARRATIVE: CASE EVENT DATE: 20201215
